FAERS Safety Report 6903610-2 (Version None)
Quarter: 2010Q3

REPORT INFORMATION
  Report Type: 
  Country: None (occurrence: None)
  Receive Date: 20100803
  Receipt Date: 20081030
  Transmission Date: 20110219
  Serious: Yes (Other)
  Sender: FDA-Public Use
  Company Number: US-PFIZER INC-2008092202

PATIENT
  Sex: Female
  Weight: 75.454 kg

DRUGS (2)
  1. LYRICA [Suspect]
     Indication: NEURALGIA
     Route: 048
     Dates: start: 20070701
  2. TYLENOL [Concomitant]

REACTIONS (1)
  - WEIGHT INCREASED [None]
